FAERS Safety Report 8532499-3 (Version None)
Quarter: 2012Q3

REPORT INFORMATION
  Report Type: 
  Country: None (occurrence: None)
  Receive Date: 20120717
  Receipt Date: 20120717
  Transmission Date: 20120928
  Serious: Yes (Hospitalization)
  Sender: FDA-Public Use
  Company Number: None

PATIENT
  Sex: Female
  Weight: 68.0396 kg

DRUGS (2)
  1. DEPO-PROVERA [Suspect]
     Indication: MIGRAINE
     Dosage: INJECTION EVERY 8 WEEKS IM
     Route: 030
     Dates: start: 19920801, end: 20030801
  2. DEPO-PROVERA [Suspect]
     Indication: PREMENSTRUAL SYNDROME
     Dosage: INJECTION EVERY 8 WEEKS IM
     Route: 030
     Dates: start: 19920801, end: 20030801

REACTIONS (1)
  - BREAST CANCER STAGE I [None]
